FAERS Safety Report 4767738-8 (Version None)
Quarter: 2005Q3

REPORT INFORMATION
  Report Type: 
  Country: None (occurrence: None)
  Receive Date: 20050912
  Receipt Date: 20050902
  Transmission Date: 20060218
  Serious: Yes (Death, Hospitalization, Other)
  Sender: FDA-Public Use
  Company Number: 2005-06-0834

PATIENT
  Age: 70 Year
  Sex: Female
  Weight: 56 kg

DRUGS (6)
  1. TEMODAL [Suspect]
     Indication: GLIOMA
     Dosage: 75 MG/M^2 ORAL
     Route: 048
     Dates: start: 20050328, end: 20050430
  2. RADIATION THERAPY [Concomitant]
  3. TAVOR TABLETS [Concomitant]
  4. PANTOZOL (PANTOPRAZOLE) TABLETS [Concomitant]
  5. REMERGIL (MIRTAZAPINE) [Concomitant]
  6. FORTECORTIN TABLETS [Concomitant]

REACTIONS (16)
  - AGRANULOCYTOSIS [None]
  - BACTERIA SPUTUM IDENTIFIED [None]
  - CANDIDIASIS [None]
  - CARDIAC FAILURE [None]
  - CONDITION AGGRAVATED [None]
  - ELECTROLYTE IMBALANCE [None]
  - ENTEROCOCCAL INFECTION [None]
  - FUNGAL INFECTION [None]
  - INTERSTITIAL LUNG DISEASE [None]
  - NO THERAPEUTIC RESPONSE [None]
  - PNEUMONIA KLEBSIELLA [None]
  - PNEUMONIA PRIMARY ATYPICAL [None]
  - PNEUMONITIS [None]
  - RESPIRATORY FAILURE [None]
  - STAPHYLOCOCCAL INFECTION [None]
  - VENOUS THROMBOSIS LIMB [None]
